FAERS Safety Report 16812914 (Version 1)
Quarter: 2019Q3

REPORT INFORMATION
  Report Type: Other
  Country: US (occurrence: US)
  Receive Date: 20190916
  Receipt Date: 20190916
  Transmission Date: 20191005
  Serious: No
  Sender: FDA-Public Use
  Company Number: US-LEADIANT BIOSCIENCES INC-2018STPI000527

PATIENT
  Sex: Female

DRUGS (14)
  1. METFORMIN [Concomitant]
     Active Substance: METFORMIN HYDROCHLORIDE
     Dosage: 500 MG, UNK
  2. ONDANSETRON [Concomitant]
     Active Substance: ONDANSETRON
     Dosage: 8 MG, UNK
     Dates: start: 20180524
  3. VITAMIN D3 [Concomitant]
     Active Substance: CHOLECALCIFEROL
     Dosage: 200 UNK, UNK
     Dates: start: 20180524
  4. RANITIDINE. [Concomitant]
     Active Substance: RANITIDINE
     Dosage: 150 MG, UNK
     Dates: start: 20180524
  5. MATULANE [Suspect]
     Active Substance: PROCARBAZINE HYDROCHLORIDE
     Indication: BRAIN NEOPLASM MALIGNANT
     Dosage: 200 MG, QD DAYS 2 TO 11
     Dates: start: 20180525
  6. PRAVASTATIN. [Concomitant]
     Active Substance: PRAVASTATIN
     Dosage: 20 MG, UNK
     Dates: start: 20180524
  7. PROCHLORPERAZ [Concomitant]
     Active Substance: PROCHLORPERAZINE MALEATE
     Dosage: 10 MG, UNK
     Dates: start: 20180524
  8. GLEOSTINE [Concomitant]
     Active Substance: LOMUSTINE
  9. ALLERGY RELIEF                     /00072502/ [Concomitant]
     Dosage: 10 MG, UNK
     Dates: start: 20180524
  10. NITROGLYCERIN. [Concomitant]
     Active Substance: NITROGLYCERIN
     Dosage: 0.4 MG, UNK
  11. ASPIRIN                            /00002701/ [Concomitant]
     Active Substance: ASPIRIN
     Dosage: 81 MG, UNK
     Dates: start: 20180524
  12. BIOTIN [Concomitant]
     Active Substance: BIOTIN
     Dosage: UNK
     Dates: start: 20180524
  13. FLUTICASONE. [Concomitant]
     Active Substance: FLUTICASONE
  14. TYLENOL [Concomitant]
     Active Substance: ACETAMINOPHEN
     Dosage: 500 MG, UNK
     Dates: start: 20180524

REACTIONS (1)
  - Pruritus [Not Recovered/Not Resolved]
